FAERS Safety Report 7688533-6 (Version None)
Quarter: 2011Q3

REPORT INFORMATION
  Report Type: 
  Country: None (occurrence: None)
  Receive Date: 20110817
  Receipt Date: 20110817
  Transmission Date: 20111222
  Serious: Yes (Life-Threatening, Disabling)
  Sender: FDA-Public Use
  Company Number: None

PATIENT
  Age: 56 Year
  Sex: Female
  Weight: 97.522 kg

DRUGS (1)
  1. CYMBALTA [Suspect]
     Indication: FIBROMYALGIA
     Dosage: ONCE A DAY

REACTIONS (6)
  - SUICIDE ATTEMPT [None]
  - CONDITION AGGRAVATED [None]
  - SOMNOLENCE [None]
  - FEAR [None]
  - POST-TRAUMATIC STRESS DISORDER [None]
  - INCORRECT DOSE ADMINISTERED [None]
